FAERS Safety Report 4790467-1 (Version None)
Quarter: 2005Q4

REPORT INFORMATION
  Report Type: 
  Country: None (occurrence: None)
  Receive Date: 20051005
  Receipt Date: 20050916
  Transmission Date: 20060501
  Serious: Yes (Hospitalization, Other)
  Sender: FDA-Public Use
  Company Number: USA0509108322

PATIENT
  Sex: Male

DRUGS (1)
  1. HUMULIN-HUMAN INSULIN (RDNA)  (HU [Suspect]
     Indication: DIABETES MELLITUS

REACTIONS (3)
  - DEMENTIA ALZHEIMER'S TYPE [None]
  - DIABETES MELLITUS INADEQUATE CONTROL [None]
  - TRIPLE VESSEL BYPASS GRAFT [None]
